FAERS Safety Report 10675389 (Version 7)
Quarter: 2015Q2

REPORT INFORMATION
  Report Type: Report from Study
  Country: US (occurrence: US)
  Receive Date: 20141224
  Receipt Date: 20150522
  Transmission Date: 20150821
  Serious: Yes (Hospitalization)
  Sender: FDA-Public Use
  Company Number: US-ACTELION-A-US2014-105707

PATIENT
  Age: 61 Year
  Sex: Female

DRUGS (6)
  1. VELETRI [Suspect]
     Active Substance: EPOPROSTENOL
     Dosage: 16 NG/KG, PER MIN
     Route: 042
  2. VELETRI [Suspect]
     Active Substance: EPOPROSTENOL
     Dosage: 5 NG/KG, PER MIN
     Route: 041
     Dates: start: 20140829
  3. ADCIRCA [Concomitant]
     Active Substance: TADALAFIL
  4. VELETRI [Suspect]
     Active Substance: EPOPROSTENOL
     Indication: PULMONARY ARTERIAL HYPERTENSION
     Dosage: 7 NG/KG, PER MIN
     Route: 042
     Dates: start: 20140903
  5. POTASSIUM [Concomitant]
     Active Substance: POTASSIUM
  6. ASPIRIN. [Concomitant]
     Active Substance: ASPIRIN

REACTIONS (9)
  - Dizziness [Not Recovered/Not Resolved]
  - Fluid retention [Unknown]
  - Nausea [Not Recovered/Not Resolved]
  - Palpitations [Unknown]
  - Diarrhoea [Unknown]
  - Heart rate irregular [Unknown]
  - Oedema [Unknown]
  - Cardiac flutter [Not Recovered/Not Resolved]
  - Pain in jaw [Unknown]

NARRATIVE: CASE EVENT DATE: 20141215
